FAERS Safety Report 5765766-7 (Version None)
Quarter: 2008Q2

REPORT INFORMATION
  Report Type: 
  Country: None (occurrence: None)
  Receive Date: 20080609
  Receipt Date: 20080609
  Transmission Date: 20081010
  Serious: No
  Sender: FDA-Public Use
  Company Number: None

PATIENT
  Sex: Female
  Weight: 78.19 kg

DRUGS (3)
  1. CISPLATIN [Suspect]
     Dosage: 86 MG
  2. DOXORUBICIN HYDROCHLORIDE [Suspect]
     Dosage: 77 MG
  3. TAXOL [Suspect]
     Dosage: 274 MG

REACTIONS (6)
  - ACTIVITIES OF DAILY LIVING IMPAIRED [None]
  - GAIT DISTURBANCE [None]
  - PAIN [None]
  - PARAESTHESIA [None]
  - PERIPHERAL SENSORY NEUROPATHY [None]
  - SLEEP DISORDER [None]
